FAERS Safety Report 8850069 (Version 1)
Quarter: 2012Q4

REPORT INFORMATION
  Report Type: 
  Country: NO (occurrence: NO)
  Receive Date: 20121019
  Receipt Date: 20121019
  Transmission Date: 20130627
  Serious: Yes (Other)
  Sender: FDA-Public Use
  Company Number: NO-PFIZER INC-2012259842

PATIENT
  Age: 67 Year
  Sex: Male

DRUGS (6)
  1. CARDURAN NEO [Suspect]
     Indication: NOCTURIA
     Dosage: 4 mg, 1x/day
     Route: 048
     Dates: start: 20120822
  2. CARDURAN NEO [Suspect]
     Dosage: 4 mg, 2x/day
     Route: 048
     Dates: start: 201210
  3. MAREVAN [Concomitant]
     Dosage: 2.5 mg, 1x/day
  4. TRIATEC [Concomitant]
  5. MEDOCOR [Concomitant]
  6. SIMVASTATIN [Concomitant]

REACTIONS (3)
  - International normalised ratio increased [Not Recovered/Not Resolved]
  - Drug ineffective for unapproved indication [Not Recovered/Not Resolved]
  - Off label use [Unknown]
